FAERS Safety Report 5561722-2 (Version None)
Quarter: 2007Q4

REPORT INFORMATION
  Report Type: 
  Country: None (occurrence: None)
  Receive Date: 20071215
  Receipt Date: 20071010
  Transmission Date: 20080405
  Serious: No
  Sender: FDA-Public Use
  Company Number: US-AMGEN-KDL247489

PATIENT
  Sex: Female

DRUGS (3)
  1. ENBREL [Suspect]
     Indication: SJOGREN'S SYNDROME
     Route: 058
     Dates: start: 20070904
  2. ENBREL [Suspect]
     Indication: DRUG USE FOR UNKNOWN INDICATION
  3. PLAQUENIL [Concomitant]
     Dates: start: 20070101

REACTIONS (6)
  - BODY TEMPERATURE INCREASED [None]
  - INJECTION SITE BRUISING [None]
  - INJECTION SITE ERYTHEMA [None]
  - INJECTION SITE PRURITUS [None]
  - INJECTION SITE SWELLING [None]
  - INJECTION SITE WARMTH [None]
